FAERS Safety Report 12899745 (Version 1)
Quarter: 2016Q4

REPORT INFORMATION
  Report Type: Spontaneous
  Country: US (occurrence: US)
  Receive Date: 20161101
  Receipt Date: 20161101
  Transmission Date: 20170207
  Serious: No
  Sender: FDA-Public Use
  Company Number: US-PFIZER INC-2016504671

PATIENT
  Sex: Female

DRUGS (1)
  1. XELJANZ [Suspect]
     Active Substance: TOFACITINIB CITRATE
     Dosage: 5 MG, UNK

REACTIONS (10)
  - Rheumatoid factor positive [Unknown]
  - Back pain [Unknown]
  - Red blood cell sedimentation rate abnormal [Unknown]
  - Myalgia [Unknown]
  - Pain [Unknown]
  - Arthralgia [Unknown]
  - C-reactive protein abnormal [Unknown]
  - Joint crepitation [Unknown]
  - Full blood count abnormal [Unknown]
  - Metabolic function test abnormal [Unknown]
